FAERS Safety Report 7153172-2 (Version None)
Quarter: 2010Q4

REPORT INFORMATION
  Report Type: 
  Country: None (occurrence: None)
  Receive Date: 20101130
  Receipt Date: 20100328
  Transmission Date: 20110411
  Serious: Yes (Hospitalization, Other)
  Sender: FDA-Public Use
  Company Number: 2010SP019265

PATIENT
  Age: 51 Year
  Sex: Female
  Weight: 99.7913 kg

DRUGS (5)
  1. NUVARING [Suspect]
     Indication: CONTRACEPTION
     Dosage: VAG
     Route: 067
     Dates: start: 20030101, end: 20080401
  2. ONE-A-DAY MULTIVITAMINS (MULTIVITAMINS) [Concomitant]
  3. DIGESTIVE ENZYMES [Concomitant]
  4. PRILOSEC [Concomitant]
  5. BENADRYL [Concomitant]

REACTIONS (1)
  - DEEP VEIN THROMBOSIS [None]
